FAERS Safety Report 9114762 (Version 1)
Quarter: 2013Q1

REPORT INFORMATION
  Report Type: Spontaneous
  Country: US (occurrence: None)
  Receive Date: 20130220
  Receipt Date: 20130220
  Transmission Date: 20140127
  Serious: No
  Sender: FDA-Public Use
  Company Number: None

PATIENT
  Age: 50 Year
  Sex: Female
  Weight: 71.22 kg

DRUGS (1)
  1. MONTELUKAST SODIUM [Suspect]

REACTIONS (2)
  - Malaise [None]
  - Product substitution issue [None]
